FAERS Safety Report 4398992-2 (Version None)
Quarter: 2004Q3

REPORT INFORMATION
  Report Type: 
  Country: None (occurrence: None)
  Receive Date: 20040712
  Receipt Date: 20040629
  Transmission Date: 20050211
  Serious: Yes (Hospitalization)
  Sender: FDA-Public Use
  Company Number: HQWYE793930JUN04

PATIENT
  Age: 72 Year
  Sex: Female

DRUGS (2)
  1. MYLOTARG [Suspect]
     Indication: ACUTE MYELOID LEUKAEMIA
     Dosage: 5 MG 1X PER 1 DAY, INTRAVENOUS
     Route: 042
     Dates: start: 20040608, end: 20040608
  2. ARSENIC TRIOXIDE (ARSENIC TRIOXIDE, ) [Suspect]
     Indication: ACUTE MYELOID LEUKAEMIA
     Dosage: 0.25 MG/KG FOR THE FIRST WEEK AND THEN 2.1 TIMES PER WEEK, INTRAVENOUS
     Route: 042
     Dates: start: 20040601

REACTIONS (11)
  - ACTINIC KERATOSIS [None]
  - CHILLS [None]
  - FEBRILE NEUTROPENIA [None]
  - FLANK PAIN [None]
  - HAEMOGLOBIN DECREASED [None]
  - HERPETIC STOMATITIS [None]
  - HIATUS HERNIA [None]
  - HILAR LYMPHADENOPATHY [None]
  - LUNG INFILTRATION [None]
  - TOOTH ABSCESS [None]
  - WHEEZING [None]
